FAERS Safety Report 10055702 (Version 1)
Quarter: 2014Q2

REPORT INFORMATION
  Report Type: Spontaneous
  Country: BR (occurrence: BR)
  Receive Date: 20140403
  Receipt Date: 20140403
  Transmission Date: 20141212
  Serious: Yes (Hospitalization)
  Sender: FDA-Public Use
  Company Number: BR-ASTRAZENECA-2014SE22436

PATIENT
  Age: 93 Year
  Sex: Female
  Weight: 62 kg

DRUGS (4)
  1. CRESTOR [Suspect]
     Indication: BLOOD CHOLESTEROL INCREASED
     Route: 048
     Dates: start: 2010
  2. VASTAREL [Concomitant]
     Indication: ACUTE MYOCARDIAL INFARCTION
     Dosage: DAILY
     Route: 048
     Dates: start: 2009
  3. SUSTRATE [Concomitant]
     Indication: ACUTE MYOCARDIAL INFARCTION
     Dosage: DAILY
     Route: 048
     Dates: start: 2009
  4. PLAVIX [Concomitant]
     Indication: ACUTE MYOCARDIAL INFARCTION
     Dosage: DAILY
     Route: 048
     Dates: start: 2009, end: 201403

REACTIONS (2)
  - Myocardial infarction [Recovered/Resolved]
  - Back pain [Unknown]
